FAERS Safety Report 11628320 (Version 1)
Quarter: 2015Q4

REPORT INFORMATION
  Report Type: Spontaneous
  Country: US (occurrence: US)
  Receive Date: 20151014
  Receipt Date: 20151014
  Transmission Date: 20160304
  Serious: Yes (Death, Hospitalization)
  Sender: FDA-Public Use
  Company Number: US-MYLANLABS-2015M1034584

PATIENT

DRUGS (6)
  1. DORZOLAMIDE W/TIMOLOL [Concomitant]
     Indication: GLAUCOMA
     Route: 065
  2. CLOZAPINE. [Suspect]
     Active Substance: CLOZAPINE
     Dosage: DOSE GRADUALLY INCREASED TO DAILY 150 MG IN THE MORNING AND 150 MG DAILY IN THE EVENING
     Route: 065
  3. VALPROATE SEMISODIUM [Concomitant]
     Active Substance: DIVALPROEX SODIUM
     Indication: SEIZURE
     Dosage: 1,000 MG DAILY
     Route: 065
  4. CLOZAPINE. [Suspect]
     Active Substance: CLOZAPINE
     Dosage: EVENING DOSE WAS INCREASED TO 175 MG DAILY 5 DAYS PRIOR TO PRESENTATION
     Route: 065
  5. LEVETIRACETAM. [Concomitant]
     Active Substance: LEVETIRACETAM
     Indication: SEIZURE
     Route: 065
  6. CLOZAPINE. [Suspect]
     Active Substance: CLOZAPINE
     Indication: SCHIZOPHRENIA
     Dosage: INITIATION DOSE NOT STATED
     Route: 065

REACTIONS (4)
  - Intestinal obstruction [Not Recovered/Not Resolved]
  - Abdominal sepsis [Fatal]
  - Cardiac arrest [Fatal]
  - Constipation [Not Recovered/Not Resolved]
